FAERS Safety Report 7492944-1 (Version None)
Quarter: 2011Q2

REPORT INFORMATION
  Report Type: 
  Country: None (occurrence: None)
  Receive Date: 20110520
  Receipt Date: 20110511
  Transmission Date: 20111010
  Serious: Yes (Other)
  Sender: FDA-Public Use
  Company Number: JP-BRISTOL-MYERS SQUIBB COMPANY-15738115

PATIENT

DRUGS (1)
  1. BARACLUDE [Suspect]
     Route: 048

REACTIONS (2)
  - BUNDLE BRANCH BLOCK [None]
  - ELECTROCARDIOGRAM T WAVE AMPLITUDE INCREASED [None]
